FAERS Safety Report 5484031-9 (Version None)
Quarter: 2007Q4

REPORT INFORMATION
  Report Type: 
  Country: None (occurrence: None)
  Receive Date: 20071012
  Receipt Date: 20071001
  Transmission Date: 20080405
  Serious: Yes (Other)
  Sender: FDA-Public Use
  Company Number: BR-ROCHE-522125

PATIENT
  Age: 18 Year
  Sex: Female
  Weight: 89 kg

DRUGS (3)
  1. ISOTRETINOIN [Suspect]
     Indication: ACNE
     Route: 048
     Dates: start: 20070401, end: 20070501
  2. ISOTRETINOIN [Suspect]
     Route: 048
     Dates: start: 20070501
  3. DIANE 35 [Concomitant]
     Indication: CONTRACEPTION
     Route: 048

REACTIONS (1)
  - PANIC REACTION [None]
